FAERS Safety Report 15454573 (Version 1)
Quarter: 2018Q4

REPORT INFORMATION
  Report Type: Spontaneous
  Country: US (occurrence: US)
  Receive Date: 20181002
  Receipt Date: 20181002
  Transmission Date: 20190204
  Serious: No
  Sender: FDA-Public Use
  Company Number: US-PFIZER INC-2018392767

PATIENT
  Age: 79 Year
  Sex: Female
  Weight: 68 kg

DRUGS (1)
  1. IBRANCE [Suspect]
     Active Substance: PALBOCICLIB
     Indication: BREAST CANCER FEMALE
     Dosage: 125 MG, 1X/DAY [ONE TIME A DAY FOR 14 DAYS]
     Route: 048
     Dates: start: 20180925

REACTIONS (4)
  - Mouth swelling [Unknown]
  - Pharyngeal oedema [Recovering/Resolving]
  - Oropharyngeal pain [Unknown]
  - Lip swelling [Unknown]

NARRATIVE: CASE EVENT DATE: 201809
